FAERS Safety Report 8160210-7 (Version None)
Quarter: 2012Q1

REPORT INFORMATION
  Report Type: 
  Country: None (occurrence: None)
  Receive Date: 20120223
  Receipt Date: 20120217
  Transmission Date: 20120608
  Serious: Yes (Hospitalization, Other)
  Sender: FDA-Public Use
  Company Number: KR-PFIZER INC-2012031207

PATIENT
  Age: 73 Year
  Sex: Female
  Weight: 55 kg

DRUGS (9)
  1. STILLEN [Concomitant]
     Indication: BACK PAIN
     Dosage: UNK
     Dates: start: 20111101, end: 20120205
  2. CRIZOTINIB [Suspect]
     Indication: NON-SMALL CELL LUNG CANCER
     Dosage: 250 MG, 2X/DAY
     Route: 048
     Dates: start: 20120104, end: 20120205
  3. AMBROXOL [Concomitant]
     Indication: UPPER RESPIRATORY TRACT INFECTION
     Dosage: UNK
     Dates: start: 20120116, end: 20120205
  4. FAMOTIDINE [Concomitant]
     Indication: GASTROOESOPHAGEAL REFLUX DISEASE
     Dosage: UNK
     Dates: start: 20120125, end: 20120205
  5. METOCLOPRAMIDE [Concomitant]
     Indication: VOMITING
     Dosage: UNK
     Dates: start: 20120104, end: 20120205
  6. ULTRACET [Concomitant]
     Indication: BACK PAIN
     Dosage: UNK
     Dates: start: 20111101, end: 20120205
  7. CODEINE PHOSPHATE [Concomitant]
     Indication: UPPER RESPIRATORY TRACT INFECTION
     Dosage: UNK
     Dates: start: 20120116, end: 20120205
  8. MEGESTROL ACETATE [Concomitant]
     Indication: DECREASED APPETITE
     Dosage: UNK
     Dates: start: 20120116, end: 20120205
  9. MAGNESIUM OXIDE [Concomitant]
     Indication: CONSTIPATION
     Dosage: UNK
     Dates: start: 20120125, end: 20120205

REACTIONS (1)
  - DRUG-INDUCED LIVER INJURY [None]
